FAERS Safety Report 13385040 (Version 1)
Quarter: 2017Q1

REPORT INFORMATION
  Report Type: Spontaneous
  Country: US (occurrence: US)
  Receive Date: 20170330
  Receipt Date: 20170330
  Transmission Date: 20170429
  Serious: No
  Sender: FDA-Public Use
  Company Number: None

PATIENT
  Age: 61 Year
  Sex: Female
  Weight: 80.81 kg

DRUGS (1)
  1. ALLOPURINOL. [Suspect]
     Active Substance: ALLOPURINOL
     Indication: BLOOD URIC ACID INCREASED
     Route: 048
     Dates: start: 20170321, end: 20170327

REACTIONS (6)
  - Feeling abnormal [None]
  - Vomiting [None]
  - Dyspnoea [None]
  - Diarrhoea [None]
  - Rash [None]
  - Nausea [None]

NARRATIVE: CASE EVENT DATE: 20170327
